FAERS Safety Report 5444166-3 (Version None)
Quarter: 2007Q3

REPORT INFORMATION
  Report Type: 
  Country: None (occurrence: None)
  Receive Date: 20070904
  Receipt Date: 20070904
  Transmission Date: 20080115
  Serious: Yes (Other)
  Sender: FDA-Public Use
  Company Number: None

PATIENT
  Age: 29 Year
  Sex: Female
  Weight: 61.2356 kg

DRUGS (2)
  1. MINOCYCLINE 100MG BID [Suspect]
     Indication: ACNE
  2. DOXYCYCLINE [Suspect]
     Indication: ACNE

REACTIONS (4)
  - DIZZINESS [None]
  - DRUG EFFECT DECREASED [None]
  - NAUSEA [None]
  - TREATMENT NONCOMPLIANCE [None]
